FAERS Safety Report 23232070 (Version 1)
Quarter: 2023Q4

REPORT INFORMATION
  Report Type: Spontaneous
  Country: None (occurrence: US)
  Receive Date: 20231127
  Receipt Date: 20231127
  Transmission Date: 20240110
  Serious: No
  Sender: FDA-Public Use
  Company Number: US-McGuff Pharmaceuticals, Inc.-2148725

PATIENT
  Age: 77 Year
  Sex: Female
  Weight: 82.727 kg

DRUGS (10)
  1. ASCORBIC ACID [Suspect]
     Active Substance: ASCORBIC ACID
     Dates: start: 20231101, end: 20231101
  2. TREPROSTINIL [Suspect]
     Active Substance: TREPROSTINIL
     Dates: start: 20231101, end: 20231101
  3. PROMETHAZINE DM [Concomitant]
     Active Substance: DEXTROMETHORPHAN HYDROBROMIDE\PROMETHAZINE HYDROCHLORIDE
     Dates: start: 20231101, end: 20231101
  4. LIPITOR [Concomitant]
     Active Substance: ATORVASTATIN CALCIUM
     Dates: start: 20231101, end: 20231101
  5. FOSAMAX [Concomitant]
     Active Substance: ALENDRONATE SODIUM
     Dates: start: 20231101, end: 20231101
  6. PANTOPRAZOLE SODIUM [Concomitant]
     Active Substance: PANTOPRAZOLE SODIUM
     Dates: start: 20231101, end: 20231101
  7. TREPROSTINIL [Concomitant]
     Active Substance: TREPROSTINIL
     Dates: start: 20231101, end: 20231101
  8. IMURAN [Concomitant]
     Active Substance: AZATHIOPRINE
     Dates: start: 20231101, end: 20231101
  9. MAGNESIUM CHLORIDE [Concomitant]
     Active Substance: MAGNESIUM CHLORIDE
     Dates: start: 20231101, end: 20231101
  10. OPSUMIT [Concomitant]
     Active Substance: MACITENTAN
     Dates: start: 20231101, end: 20231101

REACTIONS (1)
  - Chills [Recovered/Resolved]

NARRATIVE: CASE EVENT DATE: 20231101
